FAERS Safety Report 22275538 (Version 2)
Quarter: 2023Q2

REPORT INFORMATION
  Report Type: Report from Study
  Country: US (occurrence: US)
  Receive Date: 20230502
  Receipt Date: 20230518
  Transmission Date: 20230722
  Serious: Yes (Hospitalization)
  Sender: FDA-Public Use
  Company Number: US-JAZZ-2019-US-002910

PATIENT
  Age: 23 Year
  Sex: Female

DRUGS (23)
  1. XYREM [Suspect]
     Active Substance: SODIUM OXYBATE
     Indication: Narcolepsy
     Dosage: 2.25 G, BID
     Route: 048
     Dates: start: 201902, end: 201902
  2. XYREM [Suspect]
     Active Substance: SODIUM OXYBATE
     Indication: Cataplexy
     Dosage: DOSE ADJUSTMENT
     Route: 048
     Dates: start: 201902, end: 201902
  3. XYREM [Suspect]
     Active Substance: SODIUM OXYBATE
     Indication: Somnolence
     Dosage: 3 G, FIRST DOSE
     Route: 048
     Dates: start: 201902
  4. XYREM [Suspect]
     Active Substance: SODIUM OXYBATE
     Dosage: 3.5 G, SECOND DOSE
     Route: 048
     Dates: start: 201902
  5. MAGNESIUM CITRATE [Suspect]
     Active Substance: MAGNESIUM CITRATE
     Indication: Product used for unknown indication
  6. MEFENAMIC ACID [Concomitant]
     Active Substance: MEFENAMIC ACID
  7. AMBIEN [Concomitant]
     Active Substance: ZOLPIDEM TARTRATE
  8. FLUOXETINE HYDROCHLORIDE [Concomitant]
     Active Substance: FLUOXETINE HYDROCHLORIDE
  9. GLYCOPYRRONIUM [Concomitant]
     Active Substance: GLYCOPYRRONIUM
  10. ORTHO CYCLEN [Concomitant]
     Active Substance: ETHINYL ESTRADIOL\NORGESTIMATE
  11. MODAFINIL [Concomitant]
     Active Substance: MODAFINIL
  12. ADDERALL [Concomitant]
     Active Substance: AMPHETAMINE ASPARTATE\AMPHETAMINE SULFATE\DEXTROAMPHETAMINE SACCHARATE\DEXTROAMPHETAMINE SULFATE
     Dosage: UNK
  13. ADDERALL [Concomitant]
     Active Substance: AMPHETAMINE ASPARTATE\AMPHETAMINE SULFATE\DEXTROAMPHETAMINE SACCHARATE\DEXTROAMPHETAMINE SULFATE
     Dosage: UNK
  14. PROZAC [Concomitant]
     Active Substance: FLUOXETINE HYDROCHLORIDE
     Dosage: UNK
  15. PROZAC [Concomitant]
     Active Substance: FLUOXETINE HYDROCHLORIDE
     Dosage: UNK
  16. RITALIN [Concomitant]
     Active Substance: METHYLPHENIDATE HYDROCHLORIDE
     Dosage: UNK
  17. RITALIN [Concomitant]
     Active Substance: METHYLPHENIDATE HYDROCHLORIDE
     Dosage: UNK
  18. ROBINUL [Concomitant]
     Active Substance: GLYCOPYRROLATE
     Dosage: UNK
  19. ROBINUL [Concomitant]
     Active Substance: GLYCOPYRROLATE
     Dosage: UNK
  20. DESYREL [Concomitant]
     Active Substance: TRAZODONE HYDROCHLORIDE
     Dosage: UNK
  21. DESYREL [Concomitant]
     Active Substance: TRAZODONE HYDROCHLORIDE
     Dosage: UNK
  22. NORGESTIMATE [Concomitant]
     Active Substance: NORGESTIMATE
     Dosage: UNK
  23. NORGESTIMATE [Concomitant]
     Active Substance: NORGESTIMATE
     Dosage: UNK

REACTIONS (7)
  - Constipation [Recovering/Resolving]
  - Hypoaesthesia [Recovered/Resolved]
  - Back pain [Recovered/Resolved]
  - Tremor [Recovered/Resolved]
  - Nausea [Recovered/Resolved]
  - Headache [Recovered/Resolved]
  - Vomiting [Unknown]

NARRATIVE: CASE EVENT DATE: 20190201
